FAERS Safety Report 9788201 (Version 1)
Quarter: 2013Q4

REPORT INFORMATION
  Report Type: Spontaneous
  Country: GB (occurrence: GB)
  Receive Date: 20131230
  Receipt Date: 20131230
  Transmission Date: 20140711
  Serious: Yes (Other)
  Sender: FDA-Public Use
  Company Number: GB-UCBSA-107033

PATIENT
  Age: 19 Year
  Sex: Male

DRUGS (10)
  1. LEVETIRACETAM [Suspect]
     Indication: EPILEPSY
  2. SODIUM VALPROATE [Suspect]
     Indication: EPILEPSY
     Dosage: UNKNOWN
  3. CARBAMAZEPINE [Suspect]
     Indication: EPILEPSY
     Dosage: UNKNOWN
  4. TOPIRAMATE [Suspect]
     Indication: EPILEPSY
     Dosage: UNKNOWN
  5. LAMOTRIGINE [Suspect]
     Indication: EPILEPSY
  6. CLOBAZAM [Suspect]
     Indication: EPILEPSY
  7. CLONAZEPAM [Suspect]
     Indication: EPILEPSY
  8. ETHOSUXIMIDE [Suspect]
     Indication: EPILEPSY
  9. ZONISAMIDE [Suspect]
     Indication: EPILEPSY
     Dosage: UNKNOWN
  10. MIDAZOLAM [Concomitant]

REACTIONS (1)
  - Convulsion [Recovering/Resolving]
